FAERS Safety Report 5015286-2 (Version None)
Quarter: 2006Q2

REPORT INFORMATION
  Report Type: 
  Country: None (occurrence: None)
  Receive Date: 20060601
  Receipt Date: 20060523
  Transmission Date: 20061013
  Serious: Yes (Hospitalization)
  Sender: FDA-Public Use
  Company Number: US-BRISTOL-MYERS SQUIBB COMPANY-13386560

PATIENT
  Age: 53 Year
  Sex: Female
  Weight: 84 kg

DRUGS (15)
  1. ETOPOSIDE [Suspect]
     Indication: ACUTE MYELOID LEUKAEMIA
  2. CYTARABINE [Suspect]
     Indication: ACUTE MYELOID LEUKAEMIA
  3. MITOXANTRONE [Suspect]
     Indication: ACUTE MYELOID LEUKAEMIA
  4. ZOFRAN [Concomitant]
     Dates: start: 20060410
  5. SINGULAIR [Concomitant]
     Dates: start: 19980101
  6. ATROVENT [Concomitant]
     Dates: start: 19970101
  7. WELLBUTRIN [Concomitant]
     Dates: start: 20051201
  8. LEXAPRO [Concomitant]
     Dates: start: 20030101
  9. LEVOXYL [Concomitant]
  10. NEXIUM [Concomitant]
  11. PROAMATINE [Concomitant]
     Indication: ORTHOSTATIC HYPOTENSION
     Dates: start: 20050101
  12. LEVAQUIN [Concomitant]
     Dates: start: 20060312
  13. COMPAZINE [Concomitant]
     Dates: start: 20060207
  14. FLORINEF [Concomitant]
     Indication: ORTHOSTATIC HYPOTENSION
     Dates: start: 20030101
  15. ADVAIR DISKUS 100/50 [Concomitant]
     Dates: start: 20030101

REACTIONS (1)
  - EJECTION FRACTION DECREASED [None]
